FAERS Safety Report 9266568 (Version 4)
Quarter: 2013Q2

REPORT INFORMATION
  Report Type: Report from Study
  Country: IN (occurrence: IN)
  Receive Date: 20130502
  Receipt Date: 20130528
  Transmission Date: 20140414
  Serious: Yes (Hospitalization)
  Sender: FDA-Public Use
  Company Number: PHHY2013IN041107

PATIENT
  Age: 53 Year
  Sex: Male
  Weight: 56 kg

DRUGS (12)
  1. SIMULECT [Suspect]
     Indication: RENAL TRANSPLANT
     Dosage: 20 MG, UNK
     Dates: start: 20130313
  2. SIMULECT [Suspect]
     Dosage: 20 MG, UNK
     Dates: start: 20130317
  3. MYFORTIC [Suspect]
     Indication: IMMUNOSUPPRESSION
     Dosage: 180 MG, BID
  4. TACROLIMUS [Suspect]
     Indication: IMMUNOSUPPRESSION
     Dosage: UNK UKN, UNK
  5. PREDNISOLONE [Concomitant]
     Indication: IMMUNOSUPPRESSION
     Dosage: 17.5 MG, QD (AFTER BREAKFAST)
  6. PANGRAF [Concomitant]
     Dosage: 4MG- 0 - 4.5MG
  7. KETOCONAZOL [Concomitant]
     Dosage: 300 MG, QD
  8. METOPROLOL [Concomitant]
     Dosage: 50 MG, BID
  9. VALGAN [Concomitant]
     Dosage: 450MG ALTERNATE DAY
  10. SEPTRAN [Concomitant]
     Dosage: 240 MG, QD
  11. AUTRIN [Concomitant]
     Dosage: 2 DF, UNK
  12. ACTRAPID HUMAN [Concomitant]
     Dosage: 8 U, TID
     Route: 058

REACTIONS (11)
  - Diabetes mellitus [Unknown]
  - Glomerulonephritis [Unknown]
  - Tubulointerstitial nephritis [Unknown]
  - Thrombosis [Unknown]
  - Capillaritis [Unknown]
  - Leukopenia [Unknown]
  - Renal tubular necrosis [Unknown]
  - Kidney transplant rejection [Unknown]
  - Glomerular filtration rate decreased [Unknown]
  - Escherichia infection [Unknown]
  - Pyrexia [Unknown]
